FAERS Safety Report 8161277-2 (Version None)
Quarter: 2012Q1

REPORT INFORMATION
  Report Type: 
  Country: None (occurrence: None)
  Receive Date: 20120224
  Receipt Date: 20120214
  Transmission Date: 20120608
  Serious: Yes (Other)
  Sender: FDA-Public Use
  Company Number: CA-JNJFOC-20120207085

PATIENT
  Sex: Male
  Weight: 130.9 kg

DRUGS (7)
  1. ARTHROTEC [Concomitant]
     Route: 065
  2. TEMAZEPAM [Concomitant]
     Route: 065
  3. OXYCET [Concomitant]
     Route: 065
  4. REMICADE [Suspect]
     Indication: ANKYLOSING SPONDYLITIS
     Route: 042
     Dates: start: 20110511
  5. ASACOL [Concomitant]
     Route: 065
  6. RABEPRAZOLE SODIUM [Concomitant]
     Route: 065
  7. MELOXICAM [Concomitant]
     Route: 065

REACTIONS (2)
  - LOCALISED INFECTION [None]
  - INJURY [None]
